FAERS Safety Report 9509940 (Version 1)
Quarter: 2013Q3

REPORT INFORMATION
  Report Type: Spontaneous
  Country: US (occurrence: US)
  Receive Date: 20130909
  Receipt Date: 20130909
  Transmission Date: 20140515
  Serious: No
  Sender: FDA-Public Use
  Company Number: US-BRISTOL-MYERS SQUIBB COMPANY-18797944

PATIENT
  Age: 67 Year
  Sex: Male

DRUGS (4)
  1. ABILIFY [Suspect]
     Dates: start: 2013
  2. FOCALIN [Suspect]
  3. CYMBALTA [Suspect]
  4. KLONOPIN [Suspect]

REACTIONS (1)
  - Fatigue [Not Recovered/Not Resolved]
